FAERS Safety Report 16726704 (Version 2)
Quarter: 2019Q3

REPORT INFORMATION
  Report Type: Spontaneous
  Country: US (occurrence: US)
  Receive Date: 20190821
  Receipt Date: 20190824
  Transmission Date: 20191005
  Serious: Yes (Death, Hospitalization, Other)
  Sender: FDA-Public Use
  Company Number: PHEH2019US034509

PATIENT
  Age: 10 Month
  Sex: Female
  Weight: 9 kg

DRUGS (1)
  1. KYMRIAH [Suspect]
     Active Substance: TISAGENLECLEUCEL
     Indication: ACUTE LYMPHOCYTIC LEUKAEMIA RECURRENT
     Dosage: (1.3X10^6 CAR POSITIVE VIABLE TCELLS/KG)
     Route: 042
     Dates: start: 20190419

REACTIONS (14)
  - Pyrexia [Recovered/Resolved]
  - Serum ferritin increased [Unknown]
  - Acute myeloid leukaemia [Unknown]
  - Cytokine release syndrome [Recovered/Resolved]
  - Hypoxia [Unknown]
  - Tachycardia [Unknown]
  - Second primary malignancy [Unknown]
  - Malignant neoplasm progression [Fatal]
  - Irritability [Unknown]
  - Fatigue [Unknown]
  - Blood lactate dehydrogenase increased [Unknown]
  - Acute lymphocytic leukaemia [Fatal]
  - Respiratory rate increased [Unknown]
  - C-reactive protein increased [Unknown]

NARRATIVE: CASE EVENT DATE: 20190427
